FAERS Safety Report 6902291-1 (Version None)
Quarter: 2010Q3

REPORT INFORMATION
  Report Type: 
  Country: None (occurrence: None)
  Receive Date: 20100803
  Receipt Date: 20080505
  Transmission Date: 20110219
  Serious: No
  Sender: FDA-Public Use
  Company Number: US-PFIZER INC-2008041036

PATIENT
  Sex: Female
  Weight: 63.6 kg

DRUGS (6)
  1. LYRICA [Suspect]
     Indication: MIGRAINE
     Dates: start: 20080201
  2. LYRICA [Suspect]
     Indication: COMPLEX REGIONAL PAIN SYNDROME
  3. ELAVIL [Suspect]
  4. NEXIUM [Concomitant]
  5. DIOVANE [Concomitant]
  6. PERPHENAZINE [Concomitant]

REACTIONS (4)
  - ALOPECIA [None]
  - DRUG INEFFECTIVE [None]
  - DRY EYE [None]
  - EYE INFECTION [None]
